FAERS Safety Report 7155812-0 (Version None)
Quarter: 2010Q4

REPORT INFORMATION
  Report Type: 
  Country: None (occurrence: None)
  Receive Date: 20101123
  Receipt Date: 20100910
  Transmission Date: 20110411
  Serious: No
  Sender: FDA-Public Use
  Company Number: 009673

PATIENT
  Sex: Female

DRUGS (2)
  1. CIMZIA [Suspect]
     Indication: CROHN'S DISEASE
     Dosage: 400 MG 2X/MONTH SUBCUTANEOUS
     Route: 058
     Dates: start: 20090427
  2. MULTI-VITAMINS [Concomitant]

REACTIONS (5)
  - ABDOMINAL PAIN [None]
  - ARTHRITIS [None]
  - DIARRHOEA [None]
  - FATIGUE [None]
  - STRESS [None]
